FAERS Safety Report 9592929 (Version 1)
Quarter: 2013Q3

REPORT INFORMATION
  Report Type: Spontaneous
  Country: US (occurrence: None)
  Receive Date: 20130930
  Receipt Date: 20130930
  Transmission Date: 20140515
  Serious: No
  Sender: FDA-Public Use
  Company Number: 1000046843

PATIENT
  Age: 71 Year
  Sex: Female

DRUGS (10)
  1. LINZESS (LINACLOTIDE) (290 MICROGRAM, CAPSULES) [Suspect]
     Indication: CONSTIPATION
     Dosage: 1 IN 1 D
     Route: 048
     Dates: start: 20130716
  2. SENNA (SENNA) (SENNA) [Concomitant]
  3. ALPRAZOLAM (ALPRAZOLAM) (ALPRAZOLAM) [Concomitant]
  4. LORAZEPAM (LORAZEPAM) (LORAZEPAM) [Concomitant]
  5. SERTRALINE (SERTRALINE) (SERTRALINE) [Concomitant]
  6. MIRTAZAPINE (MIRTAZAPINE) (MIRTAZAPINE) [Concomitant]
  7. ALLOPURINOL (ALLOPURINOL) (ALLOPURINOL) [Concomitant]
  8. ASPIRIN (ACETYLSALICYLIC ACID) (ACETYLSALICYLIC ACID) [Concomitant]
  9. OXYCODONE (OXYCODONE) (OXYCODONE) [Concomitant]
  10. ATENOLOL (ATENOLOL) (ATENOLOL) [Concomitant]

REACTIONS (4)
  - Abdominal pain [None]
  - Chest pain [None]
  - Proctalgia [None]
  - Rectal discharge [None]
